FAERS Safety Report 24592536 (Version 2)
Quarter: 2024Q4

REPORT INFORMATION
  Report Type: Spontaneous
  Country: US (occurrence: US)
  Receive Date: 20241108
  Receipt Date: 20241111
  Transmission Date: 20250115
  Serious: Yes (Death, Congenital Anomaly)
  Sender: NOVARTIS
  Company Number: US-002147023-NVSC2024US215856

PATIENT

DRUGS (1)
  1. KESIMPTA [Suspect]
     Active Substance: OFATUMUMAB
     Indication: Foetal exposure during pregnancy
     Dosage: UNK (MATERNAL EXPOSURE DURING PREGNANCY: 20 ML, PRN (20/.4) (FORMULATION: VIAL) (ROUTE: TRANSPLACENT
     Route: 050

REACTIONS (2)
  - Congenital anomaly [Fatal]
  - Foetal exposure during pregnancy [Unknown]

NARRATIVE: CASE EVENT DATE: 20231001
